FAERS Safety Report 7979407-1 (Version None)
Quarter: 2011Q4

REPORT INFORMATION
  Report Type: 
  Country: None (occurrence: None)
  Receive Date: 20111209
  Receipt Date: 20111205
  Transmission Date: 20120403
  Serious: Yes (Death)
  Sender: FDA-Public Use
  Company Number: DSA_47423_2011

PATIENT
  Sex: Female

DRUGS (4)
  1. XENAZINE [Suspect]
     Indication: HUNTINGTON'S DISEASE
     Dosage: 25 MG  6X/DAY; 37/5 MG TID, ORAL
     Route: 048
     Dates: start: 20110729
  2. HALDOL [Concomitant]
  3. CITALOPRAM [Concomitant]
  4. DIAZEPAM [Concomitant]

REACTIONS (3)
  - SEDATION [None]
  - HYPERSOMNIA [None]
  - HYPOPHAGIA [None]
